FAERS Safety Report 9738425 (Version 1)
Quarter: 2013Q4

REPORT INFORMATION
  Report Type: Spontaneous
  Country: CN (occurrence: CN)
  Receive Date: 20131208
  Receipt Date: 20131208
  Transmission Date: 20140711
  Serious: Yes (Other)
  Sender: FDA-Public Use
  Company Number: CN-ROCHE-1312330

PATIENT
  Age: 69 Year
  Sex: Female

DRUGS (5)
  1. HERCEPTIN [Suspect]
     Indication: HER-2 POSITIVE BREAST CANCER
     Route: 065
  2. HERCEPTIN [Suspect]
     Route: 065
  3. CAPECITABINE [Suspect]
     Indication: HER-2 POSITIVE BREAST CANCER
     Dosage: DAY1-DAY14
     Route: 065
     Dates: end: 20120304
  4. DOCETAXEL [Concomitant]
     Indication: HER-2 POSITIVE BREAST CANCER
     Route: 065
     Dates: end: 20080614
  5. VINORELBINE [Concomitant]
     Indication: HER-2 POSITIVE BREAST CANCER
     Dosage: DAY1 AND DAY8
     Route: 065
     Dates: end: 20120304

REACTIONS (2)
  - Metastases to liver [Unknown]
  - Bone marrow failure [Unknown]
